FAERS Safety Report 19601535 (Version 1)
Quarter: 2021Q3

REPORT INFORMATION
  Report Type: Spontaneous
  Country: US (occurrence: US)
  Receive Date: 20210722
  Receipt Date: 20210722
  Transmission Date: 20211014
  Serious: Yes (Hospitalization, Other)
  Sender: FDA-Public Use
  Company Number: US-PRINSTON PHARMACEUTICAL INC.-2021PRN00256

PATIENT
  Age: 70 Year
  Sex: Female
  Weight: 61.23 kg

DRUGS (13)
  1. GENERIC ZYRTEC [Concomitant]
     Active Substance: CETIRIZINE HYDROCHLORIDE
     Dosage: 1 TABLET, 1X/DAY
  2. VITAMIN D3 [Concomitant]
     Active Substance: CHOLECALCIFEROL
  3. VITAMIN B [Concomitant]
     Active Substance: VITAMIN B
  4. VITAMIN K2 [Concomitant]
     Active Substance: MENAQUINONE 6
  5. MULTIVITAMIN [Concomitant]
     Active Substance: VITAMINS
  6. HYDROCHLOROTHIAZIDE. [Suspect]
     Active Substance: HYDROCHLOROTHIAZIDE
     Indication: BLOOD PRESSURE ABNORMAL
     Dosage: 25 MG, 1X/DAY
     Dates: start: 2017, end: 2021
  7. WELLBUTRIN [Concomitant]
     Active Substance: BUPROPION HYDROCHLORIDE
     Dosage: 75 MG, 1X/DAY
  8. ASPIRIN. [Concomitant]
     Active Substance: ASPIRIN
     Dosage: 81 MG, 1X/DAY
  9. PFIZER?BIONTECH COVID?19 VACCINE [Suspect]
     Active Substance: TOZINAMERAN
     Dosage: UNK
     Dates: start: 20210113, end: 20210203
  10. LEVOTHYROXINE. [Concomitant]
     Active Substance: LEVOTHYROXINE
     Dosage: 0.112 MG, 1X/DAY
  11. CALCIUM [Concomitant]
     Active Substance: CALCIUM
  12. LIPITOR [Concomitant]
     Active Substance: ATORVASTATIN CALCIUM
     Dosage: UNK, 1X/DAY
  13. ESTRADIOL. [Concomitant]
     Active Substance: ESTRADIOL
     Dosage: 0.05 MG, 1X/DAY

REACTIONS (10)
  - Osteoporosis [Not Recovered/Not Resolved]
  - Weight increased [Unknown]
  - Atrial fibrillation [Unknown]
  - Dehydration [Unknown]
  - Anxiety [Not Recovered/Not Resolved]
  - Hypotension [Recovered/Resolved]
  - Cerebrovascular accident [Recovered/Resolved]
  - Cerebral atrophy [Unknown]
  - Osteopenia [Unknown]
  - Claustrophobia [Unknown]

NARRATIVE: CASE EVENT DATE: 2018
